FAERS Safety Report 15929161 (Version 1)
Quarter: 2019Q1

REPORT INFORMATION
  Report Type: Spontaneous
  Country: US (occurrence: US)
  Receive Date: 20190206
  Receipt Date: 20190206
  Transmission Date: 20190417
  Serious: No
  Sender: FDA-Public Use
  Company Number: US-BAYER-2019-024418

PATIENT
  Sex: Female

DRUGS (2)
  1. MIRALAX [Suspect]
     Active Substance: POLYETHYLENE GLYCOL 3350
     Dosage: ;1/2 CAP FULL IN 8OZ OF WATER DOSE
     Route: 048
  2. PSYLLIUM HYDROPHILIC MUCILLOID [Suspect]
     Active Substance: PSYLLIUM HUSK

REACTIONS (4)
  - Feeling abnormal [Unknown]
  - Condition aggravated [Unknown]
  - Flatulence [Unknown]
  - Nausea [Unknown]
